FAERS Safety Report 4831648-8 (Version None)
Quarter: 2005Q4

REPORT INFORMATION
  Report Type: 
  Country: None (occurrence: None)
  Receive Date: 20051116
  Receipt Date: 20051103
  Transmission Date: 20060501
  Serious: Yes (Hospitalization)
  Sender: FDA-Public Use
  Company Number: 2005142398

PATIENT
  Age: 38 Year
  Sex: Male

DRUGS (5)
  1. ZELDOX (CAPSULES) (ZIPRASIDONE) [Suspect]
     Indication: BIPOLAR DISORDER
     Dosage: 40 MG (40 MG, 1 IN 1 D), ORAL
     Route: 048
     Dates: start: 20050901
  2. ZOLOFT [Concomitant]
  3. LEXOTAN (BROMAZEPAM) [Concomitant]
  4. ALL OTHER THERAPEUTIC PRODUCTS (ALL OTHER THERAPEUTIC PRODUCTS) [Concomitant]
  5. DEPAKENE [Concomitant]

REACTIONS (6)
  - CHEST PAIN [None]
  - HEART RATE INCREASED [None]
  - IRRITABILITY [None]
  - PANIC ATTACK [None]
  - SOMNOLENCE [None]
  - TREATMENT NONCOMPLIANCE [None]
